FAERS Safety Report 9520007 (Version 1)
Quarter: 2013Q3

REPORT INFORMATION
  Report Type: Report from Study
  Country: US (occurrence: US)
  Receive Date: 20130912
  Receipt Date: 20130912
  Transmission Date: 20140515
  Serious: Yes (Hospitalization)
  Sender: FDA-Public Use
  Company Number: US-BAYER-2013-109888

PATIENT
  Age: 78 Year
  Sex: Male

DRUGS (1)
  1. STIVARGA [Suspect]
     Indication: COLON CANCER
     Dosage: 160 MG, QD, X21 DAYS
     Route: 048

REACTIONS (4)
  - Stomatitis [None]
  - Stomatitis [None]
  - Polyuria [None]
  - Dehydration [None]
